FAERS Safety Report 20429883 (Version 1)
Quarter: 2022Q1

REPORT INFORMATION
  Report Type: Report from Study
  Country: FR (occurrence: FR)
  Receive Date: 20220204
  Receipt Date: 20220204
  Transmission Date: 20220424
  Serious: Yes (Hospitalization, Other)
  Sender: FDA-Public Use
  Company Number: FR-SERVIER-S18010933

PATIENT

DRUGS (21)
  1. ONCASPAR [Suspect]
     Active Substance: PEGASPARGASE
     Indication: Acute lymphocytic leukaemia
     Dosage: 1250 IU, QD
     Route: 042
     Dates: start: 20181022, end: 20181105
  2. PREDNISOLONE [Suspect]
     Active Substance: PREDNISOLONE
     Indication: Acute lymphocytic leukaemia
     Dosage: 30 MG, QD, FROM D1 TO D28
     Route: 048
     Dates: start: 20181011, end: 20181207
  3. VINCRISTINE SULFATE [Suspect]
     Active Substance: VINCRISTINE SULFATE
     Indication: Acute lymphocytic leukaemia
     Dosage: 0.7 MG, ON D8, D15, D22, D29
     Route: 042
     Dates: start: 20181018, end: 20181108
  4. CYTARABINE [Suspect]
     Active Substance: CYTARABINE
     Indication: Acute lymphocytic leukaemia
     Dosage: 20 MG, ON D9, D13, D18, D24
     Route: 037
     Dates: start: 20181019, end: 20181103
  5. METHOTREXATE [Suspect]
     Active Substance: METHOTREXATE
     Indication: Acute lymphocytic leukaemia
     Dosage: 8 MG, ON D1, D9, D13, D18, D24
     Route: 037
     Dates: start: 20181009, end: 20181103
  6. DAUNORUBICIN HYDROCHLORIDE [Suspect]
     Active Substance: DAUNORUBICIN HYDROCHLORIDE
     Indication: Acute lymphocytic leukaemia
     Dosage: 15 MG, ON D8, D15, D22, D29
     Route: 042
     Dates: start: 20181018, end: 20181108
  7. HYDROCORTISONE [Suspect]
     Active Substance: HYDROCORTISONE
     Indication: Acute lymphocytic leukaemia
     Dosage: 10 MG, ON D9, D13, D18, D24
     Route: 037
     Dates: start: 20181019, end: 20181103
  8. TN UNSPECIFIED [Concomitant]
     Indication: Pain prophylaxis
     Dosage: UNK
     Route: 065
     Dates: start: 20181011
  9. TN UNSPECIFIED [Concomitant]
     Indication: Prophylaxis of nausea and vomiting
     Dosage: UNK
     Route: 065
     Dates: start: 20181022
  10. TN UNSPECIFIED [Concomitant]
     Indication: Anxiety disorder
     Dosage: UNK
     Route: 042
     Dates: start: 20181023
  11. TN UNSPECIFIED [Concomitant]
     Indication: Pain prophylaxis
     Dosage: UNK
     Route: 042
     Dates: start: 20181023
  12. TN UNSPECIFIED [Concomitant]
     Indication: Prophylaxis of nausea and vomiting
     Dosage: UNK
     Route: 042
     Dates: start: 20181027
  13. TN UNSPECIFIED [Concomitant]
     Indication: Infection prophylaxis
     Dosage: UNK
     Route: 048
     Dates: start: 20181011
  14. TN UNSPECIFIED [Concomitant]
     Indication: Opportunistic infection prophylaxis
     Dosage: UNK
     Route: 048
     Dates: start: 20181017, end: 20181206
  15. TN UNSPECIFIED [Concomitant]
     Indication: Constipation prophylaxis
     Dosage: UNK
     Route: 048
     Dates: start: 20181023
  16. TN UNSPECIFED [Concomitant]
     Indication: Vitamin supplementation
     Dosage: UNK
     Route: 048
     Dates: start: 20181011
  17. TN UNSPECIFIED [Concomitant]
     Indication: Asthma prophylaxis
     Dosage: UNK
     Route: 065
  18. TN UNSPCIFIED [Concomitant]
     Indication: Asthma prophylaxis
     Dosage: UNK
     Route: 065
  19. TN UNSPECIFIED [Concomitant]
     Indication: Thrombosis prophylaxis
     Dosage: 250 IU, QD
     Route: 042
     Dates: start: 20181031, end: 20181112
  20. TN UNSPECIFIED [Concomitant]
     Indication: Pain
     Dosage: UNK
     Route: 042
     Dates: start: 20181109, end: 20181112
  21. TN UNSPECIFIED [Concomitant]
     Indication: Pain
     Dosage: UNK
     Route: 042
     Dates: start: 20181113, end: 20181201

REACTIONS (4)
  - Gamma-glutamyltransferase increased [Recovered/Resolved]
  - Arachnoiditis [Recovered/Resolved]
  - Myopathy toxic [Recovered/Resolved]
  - Cholestasis [Unknown]

NARRATIVE: CASE EVENT DATE: 20181105
